FAERS Safety Report 6214610-2 (Version None)
Quarter: 2009Q2

REPORT INFORMATION
  Report Type: 
  Country: None (occurrence: None)
  Receive Date: 20090604
  Receipt Date: 20090522
  Transmission Date: 20091009
  Serious: Yes (Death, Other)
  Sender: FDA-Public Use
  Company Number: JP-PFIZER INC-2009211746

PATIENT
  Age: 66 Year

DRUGS (7)
  1. ZYVOX [Suspect]
     Indication: PNEUMONIA STAPHYLOCOCCAL
     Dosage: 600 MG, 2X/DAY
     Route: 042
     Dates: start: 20090421, end: 20090502
  2. VERAPAMIL HYDROCHLORIDE [Concomitant]
     Dosage: UNK
     Route: 048
     Dates: start: 20090311, end: 20090507
  3. GASTROM [Concomitant]
     Dosage: UNK
     Route: 048
     Dates: start: 20090312, end: 20090517
  4. HEPARIN-FRACTION [Concomitant]
     Route: 042
  5. TARGOCID [Concomitant]
     Dosage: UNK
     Route: 042
     Dates: start: 20090408, end: 20090418
  6. VANCOMYCIN [Concomitant]
     Dosage: UNK
     Route: 042
     Dates: start: 20090317, end: 20090402
  7. MEROPEN [Concomitant]
     Dosage: UNK
     Route: 042
     Dates: start: 20090329, end: 20090420

REACTIONS (3)
  - ANAEMIA [None]
  - PLATELET COUNT DECREASED [None]
  - PNEUMONIA [None]
